FAERS Safety Report 8014455-7 (Version None)
Quarter: 2011Q4

REPORT INFORMATION
  Report Type: 
  Country: None (occurrence: None)
  Receive Date: 20111229
  Receipt Date: 20111220
  Transmission Date: 20120403
  Serious: Yes (Hospitalization, Other)
  Sender: FDA-Public Use
  Company Number: US-BAYER-2011-036215

PATIENT
  Age: 48 Year
  Sex: Female
  Weight: 120 kg

DRUGS (12)
  1. MOTRIN [Concomitant]
     Dosage: UNK
     Dates: start: 20000101
  2. YASMIN [Suspect]
     Indication: CONTRACEPTION
     Dosage: UNK
     Dates: start: 20030723, end: 20061001
  3. FLUCONAZOLE [Concomitant]
     Dosage: 100 MG, UNK
  4. ZITHROMAX [Concomitant]
     Dosage: UNK
     Dates: start: 20060601
  5. YASMIN [Suspect]
     Indication: MOOD ALTERED
  6. XANAX [Concomitant]
     Indication: ANXIETY
     Dosage: UNK
     Dates: start: 19970101
  7. EFFEXOR XR [Concomitant]
     Indication: DEPRESSION
     Dosage: 150 MG, UNK
     Dates: start: 20010101
  8. AMBIEN [Concomitant]
     Dosage: 10 MG, UNK
  9. EXCEDRIN (MIGRAINE) [Concomitant]
     Indication: HEADACHE
     Dosage: UNK UNK, BID
     Dates: start: 19760101
  10. EXCEDRIN (MIGRAINE) [Concomitant]
     Indication: OROPHARYNGEAL PAIN
  11. PROVIGIL [Concomitant]
     Indication: DEPRESSION
     Dosage: UNK
     Dates: start: 20010101
  12. ALPRAZOLAM [Concomitant]
     Indication: ANXIETY
     Dosage: 0.25 MG, UNK
     Dates: start: 20060301

REACTIONS (14)
  - PAIN [None]
  - MOBILITY DECREASED [None]
  - OEDEMA PERIPHERAL [None]
  - CHOLECYSTITIS [None]
  - PULMONARY EMBOLISM [None]
  - CHOLELITHIASIS [None]
  - THROMBOSIS [None]
  - PERIPHERAL VASCULAR DISORDER [None]
  - EMOTIONAL DISTRESS [None]
  - ANXIETY [None]
  - DEEP VEIN THROMBOSIS [None]
  - PERIPHERAL COLDNESS [None]
  - DYSPNOEA [None]
  - GENERAL PHYSICAL HEALTH DETERIORATION [None]
